FAERS Safety Report 5356668-9 (Version None)
Quarter: 2007Q2

REPORT INFORMATION
  Report Type: 
  Country: None (occurrence: None)
  Receive Date: 20070611
  Receipt Date: 20070530
  Transmission Date: 20071010
  Serious: Yes (Hospitalization)
  Sender: FDA-Public Use
  Company Number: 234384K07USA

PATIENT
  Age: 68 Year
  Sex: Female

DRUGS (4)
  1. REBIF [Suspect]
     Indication: MULTIPLE SCLEROSIS
     Dosage: 44 MCG, 3 IN 1 WEEKS, SUBCUTANEOUS
     Route: 058
     Dates: start: 20050927
  2. TOPROL-XL [Concomitant]
  3. LISINOPRIL (LISINOPRIL /00894001/) [Concomitant]
  4. ZETIA [Concomitant]

REACTIONS (1)
  - STAPHYLOCOCCAL INFECTION [None]
